FAERS Safety Report 26153666 (Version 1)
Quarter: 2025Q4

REPORT INFORMATION
  Report Type: Report from Study
  Country: US (occurrence: US)
  Receive Date: 20251214
  Receipt Date: 20251214
  Transmission Date: 20260117
  Serious: Yes (Hospitalization)
  Sender: ABBVIE
  Company Number: US-ABBVIE-6586104

PATIENT
  Sex: Male

DRUGS (1)
  1. IMBRUVICA [Suspect]
     Active Substance: IBRUTINIB
     Indication: Chronic lymphocytic leukaemia
     Dosage: MISSED DOSE
     Route: 048
     Dates: start: 20161103

REACTIONS (13)
  - Head injury [Unknown]
  - COVID-19 [Unknown]
  - Fall [Unknown]
  - Skin laceration [Unknown]
  - Allergy to chemicals [Unknown]
  - Haemoglobin decreased [Unknown]
  - Urinary tract infection [Unknown]
  - Initial insomnia [Unknown]
  - Peripheral swelling [Unknown]
  - Muscle spasms [Unknown]
  - Emotional distress [Unknown]
  - Physical disability [Unknown]
  - Pain [Unknown]
